FAERS Safety Report 5296514-5 (Version None)
Quarter: 2007Q2

REPORT INFORMATION
  Report Type: 
  Country: None (occurrence: None)
  Receive Date: 20070413
  Receipt Date: 20070404
  Transmission Date: 20071010
  Serious: Yes (Life-Threatening, Hospitalization)
  Sender: FDA-Public Use
  Company Number: US-ROCHE-488026

PATIENT
  Age: 41 Year
  Sex: Male

DRUGS (2)
  1. LARIAM [Suspect]
     Indication: PROPHYLAXIS
     Dosage: DOSE: 250 MG EVERY WEEK
     Route: 048
     Dates: end: 20070203
  2. PSEUDOEPHEDRINE HCL [Suspect]
     Route: 048
     Dates: end: 20070203

REACTIONS (2)
  - CARDIAC ARREST [None]
  - ELECTROCARDIOGRAM QT PROLONGED [None]
